FAERS Safety Report 16111727 (Version 1)
Quarter: 2019Q1

REPORT INFORMATION
  Report Type: Spontaneous
  Country: DK (occurrence: DK)
  Receive Date: 20190325
  Receipt Date: 20190325
  Transmission Date: 20190418
  Serious: Yes (Other)
  Sender: FDA-Public Use
  Company Number: DK-TEVA-2019-DK-1027993

PATIENT
  Age: 32 Year
  Sex: Female

DRUGS (1)
  1. PREDNISOLONE. [Suspect]
     Active Substance: PREDNISOLONE
     Indication: MYOSITIS
     Dosage: DOSAGE: VARYING DOSE (UP TO 75 MG PER DAY).
     Route: 048
     Dates: start: 20121126

REACTIONS (4)
  - Hirsutism [Unknown]
  - Cushingoid [Unknown]
  - Overweight [Recovering/Resolving]
  - Cushing^s syndrome [Unknown]

NARRATIVE: CASE EVENT DATE: 201211
